FAERS Safety Report 15001296 (Version 1)
Quarter: 2018Q2

REPORT INFORMATION
  Report Type: Spontaneous
  Country: US (occurrence: US)
  Receive Date: 20180523
  Receipt Date: 20180523
  Transmission Date: 20180711
  Serious: Yes (Other)
  Sender: FDA-Public Use
  Company Number: None

PATIENT
  Age: 64 Year
  Sex: Female
  Weight: 72 kg

DRUGS (1)
  1. PRIVIGEN [Suspect]
     Active Substance: HUMAN IMMUNOGLOBULIN G
     Indication: HYPOGAMMAGLOBULINAEMIA
     Dosage: ?          OTHER FREQUENCY:Q4WK;?
     Route: 042
     Dates: start: 20180405, end: 20180405

REACTIONS (4)
  - Flushing [None]
  - Headache [None]
  - Urticaria [None]
  - Tinnitus [None]

NARRATIVE: CASE EVENT DATE: 20180405
